FAERS Safety Report 13260008 (Version 1)
Quarter: 2017Q1

REPORT INFORMATION
  Report Type: Spontaneous
  Country: US (occurrence: US)
  Receive Date: 20170222
  Receipt Date: 20170222
  Transmission Date: 20170428
  Serious: No
  Sender: FDA-Public Use
  Company Number: US-TEVA-666454USA

PATIENT
  Age: 23 Year
  Sex: Female

DRUGS (1)
  1. AMPHETAMINE W/DEXTROAMPHETAMINE [Suspect]
     Active Substance: AMPHETAMINE SULFATE\DEXTROAMPHETAMINE
     Indication: ATTENTION DEFICIT/HYPERACTIVITY DISORDER

REACTIONS (8)
  - Feeling abnormal [Unknown]
  - Product taste abnormal [Unknown]
  - Drug ineffective [Unknown]
  - Nausea [Unknown]
  - Agitation [Unknown]
  - Dysgeusia [Unknown]
  - Pain in jaw [Unknown]
  - Somnolence [Unknown]

NARRATIVE: CASE EVENT DATE: 20160523
